FAERS Safety Report 10079230 (Version 2)
Quarter: 2014Q2

REPORT INFORMATION
  Report Type: Other
  Country: GB (occurrence: GB)
  Receive Date: 20140415
  Receipt Date: 20140425
  Transmission Date: 20141212
  Serious: Yes (Death, Life-Threatening)
  Sender: FDA-Public Use
  Company Number: GB-TARO PHARMACEUTICALS U.S.A., INC-2014SUN00795

PATIENT
  Age: 84 Year
  Sex: Male
  Weight: 74 kg

DRUGS (10)
  1. LANSOPRAZOLE [Concomitant]
  2. NITROFURANTOIN [Concomitant]
  3. PARACETAMOL [Concomitant]
  4. SENNA [Concomitant]
  5. WARFARIN [Suspect]
     Indication: CEREBROVASCULAR ACCIDENT PROPHYLAXIS
     Dosage: VARIABLE AS PER INTERNATIONAL NORMALISED RATIO.
     Route: 048
     Dates: start: 20081003
  6. FLUCLOXACILLIN [Interacting]
     Indication: CELLULITIS
     Route: 065
  7. AMITRIPTYLINE [Concomitant]
  8. DORZOLAMIDE HYDROCHLORIDE [Concomitant]
  9. FOLIC ACID [Concomitant]
  10. FUROSEMIDE [Concomitant]

REACTIONS (5)
  - Death [Fatal]
  - Drug interaction [Unknown]
  - General physical health deterioration [Unknown]
  - International normalised ratio increased [Not Recovered/Not Resolved]
  - Headache [Not Recovered/Not Resolved]
